FAERS Safety Report 19489251 (Version 1)
Quarter: 2021Q3

REPORT INFORMATION
  Report Type: Spontaneous
  Country: BR (occurrence: BR)
  Receive Date: 20210703
  Receipt Date: 20210703
  Transmission Date: 20211014
  Serious: Yes (Other)
  Sender: FDA-Public Use
  Company Number: NVSC2021BR143933

PATIENT
  Sex: Female
  Weight: 81 kg

DRUGS (1)
  1. LOSARTAN. [Suspect]
     Active Substance: LOSARTAN
     Indication: HYPERTENSION
     Dosage: 1 DF, QD (START DATE:AROUND 10 YEARS AGO)
     Route: 048

REACTIONS (12)
  - Paraesthesia [Not Recovered/Not Resolved]
  - Drug hypersensitivity [Unknown]
  - Pruritus [Unknown]
  - Memory impairment [Not Recovered/Not Resolved]
  - Application site haemorrhage [Recovered/Resolved]
  - Application site discolouration [Recovered/Resolved]
  - Muscle spasms [Not Recovered/Not Resolved]
  - Skin discolouration [Unknown]
  - Psoriasis [Not Recovered/Not Resolved]
  - Erythema [Unknown]
  - Diabetes mellitus [Not Recovered/Not Resolved]
  - Application site injury [Recovered/Resolved]
